FAERS Safety Report 9851828 (Version 1)
Quarter: 2014Q1

REPORT INFORMATION
  Report Type: Spontaneous
  Country: US (occurrence: None)
  Receive Date: 20140127
  Receipt Date: 20140127
  Transmission Date: 20141002
  Serious: Yes (Other)
  Sender: FDA-Public Use
  Company Number: 2014P1000262

PATIENT
  Age: 22 Year
  Sex: Male

DRUGS (1)
  1. MYORISAN 40 MG [Suspect]
     Indication: ACNE
     Dates: start: 20131021, end: 20140108

REACTIONS (4)
  - Depression [None]
  - Affect lability [None]
  - Eating disorder [None]
  - Sleep disorder [None]
